FAERS Safety Report 6977068-1 (Version None)
Quarter: 2010Q3

REPORT INFORMATION
  Report Type: 
  Country: None (occurrence: None)
  Receive Date: 20100910
  Receipt Date: 20100901
  Transmission Date: 20110219
  Serious: Yes (Death)
  Sender: FDA-Public Use
  Company Number: US-BRISTOL-MYERS SQUIBB COMPANY-15260987

PATIENT
  Age: 57 Year
  Sex: Male

DRUGS (7)
  1. TRAZODONE HCL [Suspect]
  2. FENTANYL CITRATE [Suspect]
  3. DULOXETINE HYDROCHLORIDE [Suspect]
  4. RISPERIDONE [Suspect]
  5. COCAINE [Suspect]
  6. FLUOXETINE [Suspect]
  7. ALCOHOL [Suspect]

REACTIONS (2)
  - ALCOHOL POISONING [None]
  - DRUG TOXICITY [None]
